FAERS Safety Report 18404564 (Version 1)
Quarter: 2020Q4

REPORT INFORMATION
  Report Type: Report from Study
  Country: AR (occurrence: AR)
  Receive Date: 20201020
  Receipt Date: 20201020
  Transmission Date: 20210114
  Serious: Yes (Other)
  Sender: FDA-Public Use
  Company Number: AR-TAKEDA-2020TUS043309

PATIENT
  Sex: Male

DRUGS (1)
  1. VEDOLIZUMAB [Suspect]
     Active Substance: VEDOLIZUMAB
     Indication: PRODUCT USED FOR UNKNOWN INDICATION
     Dosage: UNK
     Route: 065
     Dates: end: 20200917

REACTIONS (4)
  - Diverticulum [Recovering/Resolving]
  - Colostomy [Recovering/Resolving]
  - Perforated ulcer [Recovering/Resolving]
  - Ileostomy [Recovering/Resolving]
